FAERS Safety Report 4681636-X (Version None)
Quarter: 2005Q2

REPORT INFORMATION
  Report Type: 
  Country: None (occurrence: None)
  Receive Date: 20050602
  Receipt Date: 20050523
  Transmission Date: 20051028
  Serious: Yes (Hospitalization, Other)
  Sender: FDA-Public Use
  Company Number: SUS1-2005-00190

PATIENT
  Age: 6 Year
  Sex: Female

DRUGS (1)
  1. ADDERALL 10 [Suspect]
     Dates: start: 20030101

REACTIONS (2)
  - CONVULSION [None]
  - DROOLING [None]
